FAERS Safety Report 4624836-7 (Version None)
Quarter: 2005Q2

REPORT INFORMATION
  Report Type: 
  Country: None (occurrence: None)
  Receive Date: 20050325
  Receipt Date: 20050104
  Transmission Date: 20051028
  Serious: No
  Sender: FDA-Public Use
  Company Number: USA050187461

PATIENT
  Age: 86 Year
  Sex: Female

DRUGS (6)
  1. FORTEO [Suspect]
     Dates: start: 20040701
  2. FLUOXETINE [Concomitant]
  3. SYNTHROID [Concomitant]
  4. PREMPRO [Concomitant]
  5. CARDIZEM [Concomitant]
  6. ACTONEL [Concomitant]

REACTIONS (5)
  - ARTHRALGIA [None]
  - BONE PAIN [None]
  - FEELING ABNORMAL [None]
  - HYPERTROPHY BREAST [None]
  - PAIN IN EXTREMITY [None]
